FAERS Safety Report 8494837-X (Version None)
Quarter: 2012Q2

REPORT INFORMATION
  Report Type: 
  Country: None (occurrence: None)
  Receive Date: 20120405
  Receipt Date: 20100122
  Transmission Date: 20120825
  Serious: Yes (Hospitalization)
  Sender: FDA-Public Use
  Company Number: PHEH2010US01336

PATIENT
  Sex: Female

DRUGS (1)
  1. RECLAST [Suspect]
     Indication: OSTEOPOROSIS POSTMENOPAUSAL
     Dosage: 4 MG, 1/YR., INTRAVENOUS
     Route: 042

REACTIONS (3)
  - PRURITUS GENERALISED [None]
  - PAIN [None]
  - HYPERSENSITIVITY [None]
